FAERS Safety Report 10625982 (Version 1)
Quarter: 2014Q4

REPORT INFORMATION
  Report Type: Spontaneous
  Country: DE (occurrence: DE)
  Receive Date: 20141204
  Receipt Date: 20141204
  Transmission Date: 20150529
  Serious: Yes (Hospitalization, Congenital Anomaly, Other)
  Sender: FDA-Public Use
  Company Number: DE-JNJFOC-20141117505

PATIENT
  Age: 1 Day
  Sex: Male
  Weight: 2.36 kg

DRUGS (2)
  1. TEGRETAL [Suspect]
     Active Substance: CARBAMAZEPINE
     Indication: EPILEPSY
     Dosage: DOSE:400 AND 600 MG/DAY
     Route: 048
     Dates: start: 20130417, end: 20131229
  2. TOPIRAMATE. [Suspect]
     Active Substance: TOPIRAMATE
     Indication: EPILEPSY
     Dosage: 100-0-100 MG/D
     Route: 048
     Dates: start: 20130417, end: 20131229

REACTIONS (14)
  - Agitation neonatal [Recovered/Resolved]
  - Failure to thrive [Unknown]
  - Petechiae [Recovered/Resolved]
  - Respiratory disorder neonatal [Recovered/Resolved]
  - Hypertonia neonatal [Recovered/Resolved]
  - Atrial septal defect [Unknown]
  - Premature baby [Not Recovered/Not Resolved]
  - Apnoea neonatal [Recovered/Resolved]
  - Foetal exposure during pregnancy [Recovered/Resolved]
  - Feeding disorder neonatal [Recovered/Resolved]
  - Temperature regulation disorder [Recovered/Resolved]
  - Neonatal cholestasis [Recovered/Resolved]
  - Low birth weight baby [Unknown]
  - Congenital choroid plexus cyst [Unknown]

NARRATIVE: CASE EVENT DATE: 20131229
